FAERS Safety Report 11554654 (Version 1)
Quarter: 2015Q3

REPORT INFORMATION
  Report Type: Spontaneous
  Country: US (occurrence: US)
  Receive Date: 20150925
  Receipt Date: 20150925
  Transmission Date: 20151125
  Serious: Yes (Death, Hospitalization)
  Sender: FDA-Public Use
  Company Number: US-EGALET US INC-US-2015EGA000512

PATIENT

DRUGS (1)
  1. OXYCODONE HYDROCHLORIDE. [Suspect]
     Active Substance: OXYCODONE HYDROCHLORIDE
     Indication: PRODUCT USED FOR UNKNOWN INDICATION
     Dosage: UNK

REACTIONS (12)
  - Muscle rigidity [Unknown]
  - Overdose [Recovered/Resolved]
  - Unresponsive to stimuli [Unknown]
  - Respiratory failure [Recovered/Resolved]
  - Leukoencephalopathy [Fatal]
  - Hypoxia [Recovered/Resolved]
  - Nuclear magnetic resonance imaging brain abnormal [Unknown]
  - Parkinsonism [Unknown]
  - Mania [Unknown]
  - Brain injury [Unknown]
  - Thinking abnormal [Unknown]
  - Catatonia [Unknown]
